FAERS Safety Report 6035813-6 (Version None)
Quarter: 2009Q1

REPORT INFORMATION
  Report Type: 
  Country: None (occurrence: None)
  Receive Date: 20090113
  Receipt Date: 20090109
  Transmission Date: 20090719
  Serious: Yes (Other)
  Sender: FDA-Public Use
  Company Number: JP-AVENTIS-200910064JP

PATIENT
  Age: 76 Year
  Sex: Male

DRUGS (6)
  1. AMARYL [Suspect]
     Route: 048
  2. METFORMIN HCL [Concomitant]
  3. CALBLOCK [Concomitant]
  4. PRAMIEL                            /00041901/ [Concomitant]
  5. EPL [Concomitant]
  6. CLARITHROMYCIN [Concomitant]

REACTIONS (1)
  - RHABDOMYOLYSIS [None]
